FAERS Safety Report 9038652 (Version 1)
Quarter: 2013Q1

REPORT INFORMATION
  Report Type: Report from Study
  Country: US (occurrence: US)
  Receive Date: 20130129
  Receipt Date: 20130129
  Transmission Date: 20140127
  Serious: No
  Sender: FDA-Public Use
  Company Number: US-ABBOTT-12P-163-0935651-00

PATIENT
  Age: 49 Year
  Sex: Female

DRUGS (13)
  1. HUMIRA 40 MG/0.8 ML PEN [Suspect]
     Indication: PSORIASIS
     Dates: start: 20120419
  2. SORIATANE [Concomitant]
     Indication: PRODUCT USED FOR UNKNOWN INDICATION
     Dosage: STOPPED MEDICATION BECAUSE IT EXACERBATED HER PSORIASIS AND LEFT HER CRYING FROM THE PAIN.
     Dates: start: 20120405, end: 20120416
  3. PREDNISONE [Concomitant]
     Indication: HYPERSENSITIVITY
  4. WELLBUTRIN SR [Concomitant]
     Indication: PRODUCT USED FOR UNKNOWN INDICATION
     Dosage: EVERY DAY 1-2 TABS AS NEEDED
  5. CETIRIZINE [Concomitant]
     Indication: HYPERSENSITIVITY
  6. KLONOPIN [Concomitant]
     Indication: INSOMNIA
     Dosage: 1-2 TABLETS AT NIGHT
  7. LISINOPRIL [Concomitant]
     Indication: BLOOD PRESSURE
  8. PRILOSEC [Concomitant]
     Indication: PRODUCT USED FOR UNKNOWN INDICATION
  9. ASPIRIN [Concomitant]
     Indication: PRODUCT USED FOR UNKNOWN INDICATION
     Dosage: EVERY DAY
  10. CELEXA [Concomitant]
     Indication: ANXIETY
  11. CELEXA [Concomitant]
     Indication: DEPRESSION
  12. CENTRUM ULTRA VITAMINS FOR WOMEN [Concomitant]
     Indication: PRODUCT USED FOR UNKNOWN INDICATION
  13. GLUCOSAMINE CHONDROITIN [Concomitant]
     Indication: PRODUCT USED FOR UNKNOWN INDICATION
     Dosage: 2 PILLS EVERY DAY

REACTIONS (7)
  - Hypersomnia [Recovered/Resolved]
  - Nausea [Unknown]
  - Vomiting [Unknown]
  - Hypersomnia [Recovered/Resolved]
  - Somnolence [Recovered/Resolved]
  - Pain [Unknown]
  - Asthenia [Recovered/Resolved]
